FAERS Safety Report 12266028 (Version 1)
Quarter: 2016Q2

REPORT INFORMATION
  Report Type: Spontaneous
  Country: US (occurrence: US)
  Receive Date: 20160413
  Receipt Date: 20160413
  Transmission Date: 20160815
  Serious: No
  Sender: FDA-Public Use
  Company Number: US-GREER LABORATORIES, INC.-1050544

PATIENT
  Age: 16 Year
  Sex: Female

DRUGS (12)
  1. POLLENS - TREES, ASH, WHITE FRAXINUS AMERICANA [Suspect]
     Active Substance: FRAXINUS AMERICANA POLLEN
     Route: 058
  2. STANDARDIZED GRASS POLLEN, GRASS MIX 7 [Suspect]
     Active Substance: AGROSTIS GIGANTEA POLLEN\ANTHOXANTHUM ODORATUM POLLEN\DACTYLIS GLOMERATA POLLEN\FESTUCA PRATENSIS POLLEN\LOLIUM PERENNE POLLEN\PHLEUM PRATENSE POLLEN\POA PRATENSIS POLLEN
     Route: 058
  3. ANIMAL ALLERGENS, DOG HAIR AND DANDER CANIS SPP. [Suspect]
     Active Substance: CANIS LUPUS FAMILIARIS DANDER\CANIS LUPUS FAMILIARIS HAIR
     Route: 058
  4. HUMAN SERUM ALBUMIN (HSA) [Suspect]
     Active Substance: ALBUMIN HUMAN
     Route: 058
  5. POLLENS - GRASSES, JOHNSON GRASS SORGHUM HALEPENSE [Suspect]
     Active Substance: SORGHUM HALEPENSE POLLEN
     Route: 058
  6. STANDARDIZED CAT PELT [Suspect]
     Active Substance: FELIS CATUS DANDER
     Route: 058
  7. POLLENS - WEEDS AND GARDEN PLANTS, RAGWEED, MIXED AMBROSIA [Suspect]
     Active Substance: AMBROSIA ARTEMISIIFOLIA POLLEN\AMBROSIA TRIFIDA POLLEN
     Route: 058
  8. MIXTURE OF STANDARDIZED MITES [Suspect]
     Active Substance: DERMATOPHAGOIDES FARINAE\DERMATOPHAGOIDES PTERONYSSINUS
     Route: 058
  9. STANDARDIZED GRASS POLLEN, GRASS MIX 7 [Suspect]
     Active Substance: AGROSTIS GIGANTEA POLLEN\ANTHOXANTHUM ODORATUM POLLEN\DACTYLIS GLOMERATA POLLEN\FESTUCA PRATENSIS POLLEN\LOLIUM PERENNE POLLEN\PHLEUM PRATENSE POLLEN\POA PRATENSIS POLLEN
     Route: 058
  10. POLLENS - WEEDS, MARSHELDER/POVERTY MIX [Suspect]
     Active Substance: CYCLACHAENA XANTHIFOLIA POLLEN\IVA ANNUA POLLEN\IVA AXILLARIS POLLEN
     Route: 058
  11. POLLENS - TREES, MULBERRY MIX [Suspect]
     Active Substance: MORUS ALBA POLLEN\MORUS RUBRA POLLEN
     Route: 058
  12. POLLENS - WEEDS AND GARDEN PLANTS, LAMB QUARTERS CHENOPODIUM ALBUM [Suspect]
     Active Substance: CHENOPODIUM ALBUM POLLEN
     Route: 058

REACTIONS (6)
  - Feeling hot [Recovered/Resolved]
  - Dizziness [Recovered/Resolved]
  - Dermatitis allergic [Recovered/Resolved]
  - Abdominal pain [Recovered/Resolved]
  - Dyspnoea [Recovered/Resolved]
  - Anxiety [Recovered/Resolved]

NARRATIVE: CASE EVENT DATE: 20160104
